FAERS Safety Report 12310810 (Version 2)
Quarter: 2016Q2

REPORT INFORMATION
  Report Type: Spontaneous
  Country: BD (occurrence: BD)
  Receive Date: 20160427
  Receipt Date: 20160621
  Transmission Date: 20160815
  Serious: Yes (Death)
  Sender: FDA-Public Use
  Company Number: PHHY2016BD056515

PATIENT
  Age: 80 Year
  Sex: Female

DRUGS (1)
  1. EXELON PATCH [Suspect]
     Active Substance: RIVASTIGMINE
     Indication: DEMENTIA
     Dosage: 4.6 MG/24HOURS (PATCH 5 CM2, 09 MG DAILY RIVASTIGMINE BASE)
     Route: 062
     Dates: start: 20160224

REACTIONS (3)
  - Diabetes mellitus [Fatal]
  - Hypertension [Fatal]
  - Cerebrovascular accident [Fatal]
